FAERS Safety Report 15941836 (Version 2)
Quarter: 2019Q1

REPORT INFORMATION
  Report Type: Spontaneous
  Country: US (occurrence: US)
  Receive Date: 20190209
  Receipt Date: 20190222
  Transmission Date: 20190417
  Serious: Yes (Hospitalization)
  Sender: FDA-Public Use
  Company Number: US-PRINSTON PHARMACEUTICAL INC.-2019PRN00134

PATIENT
  Age: 58 Year
  Sex: Male
  Weight: 109.75 kg

DRUGS (1)
  1. IRBESARTAN. [Suspect]
     Active Substance: IRBESARTAN
     Indication: BLOOD PRESSURE ABNORMAL
     Dosage: 300 MG, 1X/DAY
     Route: 048
     Dates: end: 20190122

REACTIONS (4)
  - Liver disorder [Unknown]
  - Acute kidney injury [Recovering/Resolving]
  - Blood potassium abnormal [Unknown]
  - Prostate cancer [Not Recovered/Not Resolved]

NARRATIVE: CASE EVENT DATE: 201809
